FAERS Safety Report 5009984-4 (Version None)
Quarter: 2006Q2

REPORT INFORMATION
  Report Type: 
  Country: None (occurrence: None)
  Receive Date: 20060522
  Receipt Date: 20060509
  Transmission Date: 20061013
  Serious: Yes (Other)
  Sender: FDA-Public Use
  Company Number: T200600523

PATIENT
  Age: 79 Year
  Sex: Female

DRUGS (1)
  1. OPTIRAY 160 [Suspect]
     Indication: DIAGNOSTIC PROCEDURE
     Dosage: 100 ML, SINGLE, INTRAVENOUS
     Route: 042
     Dates: start: 20060330, end: 20060330

REACTIONS (5)
  - CONDITION AGGRAVATED [None]
  - ERYTHEMA [None]
  - HYPERTENSION [None]
  - MUSCLE SPASMS [None]
  - MYALGIA [None]
